FAERS Safety Report 8083995-7 (Version None)
Quarter: 2012Q1

REPORT INFORMATION
  Report Type: 
  Country: None (occurrence: None)
  Receive Date: 20120128
  Receipt Date: 20110107
  Transmission Date: 20120608
  Serious: No
  Sender: FDA-Public Use
  Company Number: US-ABBOTT-11P-163-0696291-00

PATIENT
  Sex: Male
  Weight: 93.524 kg

DRUGS (4)
  1. METHOTREXATE [Concomitant]
     Indication: RHEUMATOID ARTHRITIS
  2. HUMIRA [Suspect]
     Indication: RHEUMATOID ARTHRITIS
     Dates: start: 20100801
  3. RELAFEN [Concomitant]
     Indication: INFLAMMATION
  4. RELAFEN [Concomitant]
     Indication: PAIN

REACTIONS (3)
  - PAIN [None]
  - ARTHRALGIA [None]
  - GAIT DISTURBANCE [None]
